FAERS Safety Report 11741991 (Version 1)
Quarter: 2015Q4

REPORT INFORMATION
  Report Type: Spontaneous
  Country: US (occurrence: None)
  Receive Date: 20151113
  Receipt Date: 20151113
  Transmission Date: 20160304
  Serious: Yes (Life-Threatening)
  Sender: FDA-Public Use
  Company Number: None

PATIENT
  Age: 60 Year
  Sex: Female
  Weight: 55.79 kg

DRUGS (3)
  1. PROLIA [Suspect]
     Active Substance: DENOSUMAB
     Indication: BONE DENSITY ABNORMAL
     Dosage: INJECTION-2 TIMES PER YEAR
     Dates: start: 20150303, end: 20150916
  2. CALTRATE [Concomitant]
     Active Substance: CALCIUM CARBONATE
  3. PROLIA [Concomitant]
     Active Substance: DENOSUMAB

REACTIONS (1)
  - Lymphocytic lymphoma [None]

NARRATIVE: CASE EVENT DATE: 20151111
